FAERS Safety Report 11702529 (Version 3)
Quarter: 2016Q2

REPORT INFORMATION
  Report Type: Report from Study
  Country: DK (occurrence: DK)
  Receive Date: 20151105
  Receipt Date: 20160627
  Transmission Date: 20160815
  Serious: Yes (Hospitalization, Disabling, Other)
  Sender: FDA-Public Use
  Company Number: DK-ABBVIE-15P-044-1489680-00

PATIENT
  Age: 51 Year
  Sex: Male

DRUGS (4)
  1. VIEKIRAX [Suspect]
     Active Substance: OMBITASVIR\PARITAPREVIR\RITONAVIR
     Indication: CHRONIC HEPATITIS C
     Route: 048
     Dates: start: 20150909, end: 20151022
  2. EXVIERA [Suspect]
     Active Substance: DASABUVIR
     Indication: CHRONIC HEPATITIS C
     Route: 048
     Dates: start: 20150909, end: 20151022
  3. RIBAVIRIN. [Concomitant]
     Active Substance: RIBAVIRIN
     Indication: HEPATITIS C
     Route: 048
     Dates: start: 20150909, end: 20151021
  4. METHADONE [Concomitant]
     Active Substance: METHADONE HYDROCHLORIDE
     Indication: DRUG ABUSE
     Route: 065

REACTIONS (9)
  - Seizure [Recovered/Resolved with Sequelae]
  - Confusional state [Not Recovered/Not Resolved]
  - Infection [Unknown]
  - Agitation [Unknown]
  - Hepatic cirrhosis [Unknown]
  - Status epilepticus [Unknown]
  - Coma [Recovered/Resolved with Sequelae]
  - Muscle spasms [Unknown]
  - Cerebral ischaemia [Recovered/Resolved with Sequelae]

NARRATIVE: CASE EVENT DATE: 20151021
